FAERS Safety Report 7757257-9 (Version None)
Quarter: 2011Q3

REPORT INFORMATION
  Report Type: 
  Country: None (occurrence: None)
  Receive Date: 20110916
  Receipt Date: 20110914
  Transmission Date: 20111222
  Serious: Yes (Other)
  Sender: FDA-Public Use
  Company Number: BR-PFIZER INC-2011217287

PATIENT
  Age: 88 Year
  Sex: Male

DRUGS (1)
  1. CARDURA [Suspect]
     Indication: PROSTATIC DISORDER
     Dosage: 4 MG, 1X/DAY
     Route: 048
     Dates: start: 20110823, end: 20110906

REACTIONS (5)
  - BLISTER [None]
  - BRONCHITIS [None]
  - ASTHMA [None]
  - AGITATION [None]
  - DIZZINESS [None]
